FAERS Safety Report 6723275-2 (Version None)
Quarter: 2010Q2

REPORT INFORMATION
  Report Type: 
  Country: None (occurrence: None)
  Receive Date: 20100512
  Receipt Date: 20100512
  Transmission Date: 20101027
  Serious: Yes (Other)
  Sender: FDA-Public Use
  Company Number: None

PATIENT
  Sex: Female
  Weight: 86.637 kg

DRUGS (2)
  1. AMLODIPINE BESYLATE [Suspect]
     Indication: HYPERTENSION
     Dosage: 10 MG 1 QD ORAL PT ON MEDS FOR 20+ YEARS?
     Route: 048
  2. ATENOLOL AND CHLORTHALIDONE [Suspect]
     Indication: HYPERTENSION
     Dosage: 100 MG - 25 MG 1 QD ORAL
     Route: 048

REACTIONS (3)
  - NO THERAPEUTIC RESPONSE [None]
  - PRODUCT QUALITY ISSUE [None]
  - UNEVALUABLE EVENT [None]
